FAERS Safety Report 23843404 (Version 1)
Quarter: 2024Q2

REPORT INFORMATION
  Report Type: Spontaneous
  Country: US (occurrence: US)
  Receive Date: 20240510
  Receipt Date: 20240510
  Transmission Date: 20240715
  Serious: Yes (Life-Threatening, Hospitalization, Other)
  Sender: FDA-Public Use
  Company Number: US-GKKIN-20170807-PI203856

PATIENT
  Age: 47 Year
  Sex: Female

DRUGS (6)
  1. TRANSDERM SCOP [Suspect]
     Active Substance: SCOPOLAMINE
     Dosage: PATCH PLACED PREOPERATIVELY TO THE 2 HOUR PROCEDURE
     Route: 062
  2. QUETIAPINE [Suspect]
     Active Substance: QUETIAPINE
     Dosage: 50 MG THREE TIMES DAILY
     Route: 065
  3. HYDROXYZINE [Suspect]
     Active Substance: HYDROXYZINE HYDROCHLORIDE
     Dosage: 100 MG THREE TIMES DAILY
     Route: 065
  4. TRAZODONE [Suspect]
     Active Substance: TRAZODONE HYDROCHLORIDE
     Dosage: 200 MG AT BED TIME
     Route: 065
  5. GABAPENTIN [Concomitant]
     Active Substance: GABAPENTIN
     Dosage: 800 MG THREE TIMES DAILY
     Route: 065
  6. BUPROPION HYDROCHLORIDE [Concomitant]
     Active Substance: BUPROPION HYDROCHLORIDE
     Dosage: 150 MG TWICE DAILY
     Route: 065

REACTIONS (19)
  - Anticholinergic syndrome [Recovered/Resolved]
  - Mental status changes [Recovered/Resolved]
  - Dysarthria [Recovered/Resolved]
  - Dyskinesia [Recovered/Resolved]
  - Speech disorder [Recovered/Resolved]
  - Hypotonia [Recovered/Resolved]
  - Somnolence [Recovered/Resolved]
  - Pupillary reflex impaired [Recovered/Resolved]
  - Mucosal disorder [Recovered/Resolved]
  - Bladder disorder [Recovered/Resolved]
  - Choreoathetosis [Recovered/Resolved]
  - Hyperreflexia [Recovered/Resolved]
  - Mydriasis [Recovered/Resolved]
  - Dystonia [Recovered/Resolved]
  - Urinary incontinence [Recovered/Resolved]
  - Electrocardiogram QT prolonged [Recovered/Resolved]
  - Urinary retention [Recovered/Resolved]
  - Hallucination, visual [Recovered/Resolved]
  - Blood thyroid stimulating hormone increased [Recovered/Resolved]
